FAERS Safety Report 21441256 (Version 1)
Quarter: 2022Q4

REPORT INFORMATION
  Report Type: Spontaneous
  Country: GB (occurrence: GB)
  Receive Date: 20221011
  Receipt Date: 20221011
  Transmission Date: 20230113
  Serious: Yes (Other)
  Sender: FDA-Public Use
  Company Number: None

PATIENT
  Age: 15 Year
  Sex: Female

DRUGS (1)
  1. BISOPROLOL [Suspect]
     Active Substance: BISOPROLOL
     Indication: Long QT syndrome
     Dosage: UNK (DRUG TO BE WITHDRAWN AND TRIAL OF ANOTHER BETA-BLOCKER. EXACT DOSE HAS NOT BEEN PROVIDED)
     Route: 048

REACTIONS (1)
  - Alopecia [Not Recovered/Not Resolved]
